FAERS Safety Report 23522172 (Version 1)
Quarter: 2024Q1

REPORT INFORMATION
  Report Type: Spontaneous
  Country: US (occurrence: US)
  Receive Date: 20240214
  Receipt Date: 20240214
  Transmission Date: 20240410
  Serious: No
  Sender: FDA-Public Use
  Company Number: US-SANOFI-01942618

PATIENT
  Age: 62 Year
  Sex: Female

DRUGS (1)
  1. LANTUS SOLOSTAR [Suspect]
     Active Substance: INSULIN GLARGINE
     Indication: Type 1 diabetes mellitus
     Dosage: 30 TO 36 UNITS IN THE MORNING, 28 UNITS IN THE EVENING BID

REACTIONS (4)
  - Memory impairment [Unknown]
  - Mental disorder [Unknown]
  - Tinnitus [Unknown]
  - Inappropriate schedule of product administration [Unknown]
